FAERS Safety Report 4685481-0 (Version None)
Quarter: 2005Q2

REPORT INFORMATION
  Report Type: 
  Country: None (occurrence: None)
  Receive Date: 20050608
  Receipt Date: 20050520
  Transmission Date: 20051028
  Serious: Yes (Other)
  Sender: FDA-Public Use
  Company Number: PHEH2005US05835

PATIENT
  Age: 66 Year
  Sex: Male

DRUGS (11)
  1. ZOMETA [Suspect]
     Indication: MULTIPLE MYELOMA
  2. INTERFERON [Concomitant]
  3. CLARITIN [Concomitant]
  4. PAXIL [Concomitant]
     Dosage: 5 MG, UNK
  5. GEMFIBROZIL [Concomitant]
     Dosage: 600 MG, BID
  6. TESTOSTERONE [Concomitant]
     Dosage: 300 MG, TIW
  7. CELEBREX [Concomitant]
     Dosage: 200 MG, UNK
  8. COZAAR [Concomitant]
     Dosage: 50 MG, UNK
  9. GLUCOSAMINE SULFATE [Concomitant]
  10. MULTI-VITAMINS [Concomitant]
  11. B-50 [Concomitant]

REACTIONS (4)
  - ASEPTIC NECROSIS BONE [None]
  - BONE DENSITY DECREASED [None]
  - GINGIVAL ULCERATION [None]
  - TOOTH DISORDER [None]
